FAERS Safety Report 7298396-9 (Version None)
Quarter: 2011Q1

REPORT INFORMATION
  Report Type: 
  Country: None (occurrence: None)
  Receive Date: 20110217
  Receipt Date: 20100427
  Transmission Date: 20110831
  Serious: No
  Sender: FDA-Public Use
  Company Number: US-PFIZER INC-2010053918

PATIENT
  Sex: Female
  Weight: 62.13 kg

DRUGS (6)
  1. NEXIUM [Concomitant]
     Dosage: UNK
  2. XALATAN [Suspect]
     Indication: GLAUCOMA
     Dosage: UNK
     Dates: start: 20090101
  3. AMLODIPINE [Concomitant]
     Dosage: 10 MG, UNK
  4. XALATAN [Suspect]
     Indication: INTRAOCULAR PRESSURE INCREASED
  5. KLOR-CON [Concomitant]
     Dosage: 10 MG, UNK
  6. HYDROCHLOROTHIAZIDE [Concomitant]
     Dosage: 25 MG, UNK

REACTIONS (2)
  - SKIN DISCOLOURATION [None]
  - PIGMENTATION DISORDER [None]
